FAERS Safety Report 12690320 (Version 3)
Quarter: 2016Q3

REPORT INFORMATION
  Report Type: Spontaneous
  Country: GB (occurrence: BR)
  Receive Date: 20160826
  Receipt Date: 20160830
  Transmission Date: 20161109
  Serious: Yes (Other)
  Sender: FDA-Public Use
  Company Number: GB-ABBVIE-16K-167-1709590-00

PATIENT
  Age: 86 Year
  Sex: Female

DRUGS (1)
  1. HUMIRA [Suspect]
     Active Substance: ADALIMUMAB
     Indication: RHEUMATOID ARTHRITIS
     Route: 058
     Dates: start: 2012

REACTIONS (17)
  - Increased tendency to bruise [Unknown]
  - Haemorrhagic diathesis [Unknown]
  - Insomnia [Unknown]
  - Skin exfoliation [Unknown]
  - Erythema [Unknown]
  - Stress [Unknown]
  - Peripheral swelling [Unknown]
  - Swelling face [Unknown]
  - Mouth swelling [Unknown]
  - Dry skin [Unknown]
  - Pruritus [Unknown]
  - Emotional disorder [Unknown]
  - Rash papular [Unknown]
  - Hypersensitivity [Unknown]
  - Rash [Unknown]
  - Skin atrophy [Unknown]
  - Pruritus generalised [Unknown]

NARRATIVE: CASE EVENT DATE: 201510
